FAERS Safety Report 5292130-X (Version None)
Quarter: 2007Q2

REPORT INFORMATION
  Report Type: 
  Country: None (occurrence: None)
  Receive Date: 20070410
  Receipt Date: 20070406
  Transmission Date: 20071010
  Serious: Yes (Death)
  Sender: FDA-Public Use
  Company Number: US-GLAXOSMITHKLINE-A0646198A

PATIENT

DRUGS (2)
  1. LAMICTAL [Suspect]
     Route: 048
  2. OTHER MEDICATIONS [Concomitant]

REACTIONS (1)
  - STEVENS-JOHNSON SYNDROME [None]
